FAERS Safety Report 21564406 (Version 1)
Quarter: 2022Q4

REPORT INFORMATION
  Report Type: Spontaneous
  Country: JP (occurrence: JP)
  Receive Date: 20221108
  Receipt Date: 20221108
  Transmission Date: 20230112
  Serious: Yes (Other)
  Sender: FDA-Public Use
  Company Number: JP-GILEAD-2022-0603355

PATIENT
  Sex: Male

DRUGS (9)
  1. AMBRISENTAN [Suspect]
     Active Substance: AMBRISENTAN
     Indication: Pulmonary arterial hypertension
     Dosage: 10 MG, QD
     Route: 065
  2. AMBRISENTAN [Suspect]
     Active Substance: AMBRISENTAN
     Indication: Heritable pulmonary arterial hypertension
  3. FLOLAN [Suspect]
     Active Substance: EPOPROSTENOL SODIUM
     Indication: Heritable pulmonary arterial hypertension
     Dosage: UNK, CO
     Route: 041
  4. FLOLAN [Suspect]
     Active Substance: EPOPROSTENOL SODIUM
     Dosage: 75 NG/KG, CO
     Route: 041
  5. FLOLAN [Suspect]
     Active Substance: EPOPROSTENOL SODIUM
     Dosage: 151 NG/KG, CO
     Route: 041
  6. FLOLAN [Suspect]
     Active Substance: EPOPROSTENOL SODIUM
     Dosage: 115 NG/KG, CO
     Route: 041
  7. TADALAFIL [Concomitant]
     Active Substance: TADALAFIL
     Dosage: 40 MG, QD
  8. SILDENAFIL [Concomitant]
     Active Substance: SILDENAFIL
     Dosage: 30 MG, QD
  9. TREPROSTINIL [Concomitant]
     Active Substance: TREPROSTINIL

REACTIONS (5)
  - Ascites [Recovered/Resolved]
  - Ventricular hypertrophy [Recovered/Resolved]
  - Dyspnoea [Recovered/Resolved]
  - Depression [Unknown]
  - Therapeutic product effect incomplete [Unknown]
